FAERS Safety Report 23026569 (Version 1)
Quarter: 2023Q4

REPORT INFORMATION
  Report Type: Spontaneous
  Country: US (occurrence: US)
  Receive Date: 20231004
  Receipt Date: 20231004
  Transmission Date: 20240110
  Serious: Yes (Hospitalization)
  Sender: FDA-Public Use
  Company Number: US-drreddys-SPO/USA/23/0178531

PATIENT
  Age: 40 Year
  Sex: Male
  Weight: 105.2 kg

DRUGS (2)
  1. CLOZAPINE [Suspect]
     Active Substance: CLOZAPINE
     Indication: Product used for unknown indication
     Dosage: NIGHTLY AT BED TIME
     Route: 048
  2. BENZTROPINE [Suspect]
     Active Substance: BENZTROPINE
     Indication: Product used for unknown indication
     Route: 048

REACTIONS (2)
  - Hospitalisation [Unknown]
  - Neutrophilia [Unknown]

NARRATIVE: CASE EVENT DATE: 20230907
